FAERS Safety Report 16654335 (Version 1)
Quarter: 2019Q3

REPORT INFORMATION
  Report Type: Spontaneous
  Country: CZ (occurrence: CZ)
  Receive Date: 20190731
  Receipt Date: 20190731
  Transmission Date: 20191004
  Serious: Yes (Congenital Anomaly, Other)
  Sender: FDA-Public Use
  Company Number: CZ-009507513-1907CZE012752

PATIENT
  Age: 39 Year
  Sex: Female
  Weight: 66 kg

DRUGS (3)
  1. MIRTAZAPINE. [Suspect]
     Active Substance: MIRTAZAPINE
     Dosage: DURING PREGNANCY: 1 MONTH OF 30 MG DOSAGE, THEN CHANGED TO 15 MG
     Route: 048
     Dates: start: 2009, end: 2019
  2. MIRTAZAPINE. [Suspect]
     Active Substance: MIRTAZAPINE
     Dosage: 15 MILLIGRAM
     Route: 048
     Dates: start: 2019
  3. NEUROL (ALPRAZOLAM) [Concomitant]
     Active Substance: ALPRAZOLAM
     Dosage: AS NEEEDED

REACTIONS (1)
  - Abortion spontaneous [Recovered/Resolved with Sequelae]

NARRATIVE: CASE EVENT DATE: 2019
